FAERS Safety Report 9684441 (Version 1)
Quarter: 2013Q4

REPORT INFORMATION
  Report Type: Spontaneous
  Country: JP (occurrence: JP)
  Receive Date: 20131112
  Receipt Date: 20131112
  Transmission Date: 20140711
  Serious: Yes (Hospitalization, Other)
  Sender: FDA-Public Use
  Company Number: JP-PFIZER INC-2013319771

PATIENT
  Age: 77 Year
  Sex: Male
  Weight: 55 kg

DRUGS (6)
  1. DEXAMETHASONE SODIUM PHOSPHATE [Suspect]
     Indication: PLASMA CELL MYELOMA
     Dosage: 8 MG PER DAY X 2 CONSECUTIVE DAYS
     Route: 042
  2. SODIUM BICARBONATE [Suspect]
     Dosage: 80 MMOL/L, DAILY
     Route: 042
  3. NORMAL SALINE [Suspect]
     Dosage: NA, 154 MMOL/L; CL, 154 MMOL/L; 500 ML X 2/DAY; DAILY
     Route: 042
  4. BORTEZOMIB [Concomitant]
     Dosage: 1.3 MG/M2 PER DOSE, WEEKLY
     Route: 042
  5. ELCATONIN [Concomitant]
     Dosage: 40 UNITS PER DAY FOR 5 CONSECUTIVE DAYS
     Route: 042
  6. ZOLEDRONIC ACID [Concomitant]
     Dosage: 4 MG PER DOSE, MONTHLY
     Route: 042

REACTIONS (5)
  - Altered state of consciousness [Recovered/Resolved]
  - Hypernatraemia [Recovered/Resolved]
  - Hyperchloraemia [Recovered/Resolved]
  - Blood potassium decreased [Recovered/Resolved]
  - Electrolyte imbalance [Recovered/Resolved]
